FAERS Safety Report 8084429-9 (Version None)
Quarter: 2012Q1

REPORT INFORMATION
  Report Type: 
  Country: None (occurrence: None)
  Receive Date: 20120128
  Receipt Date: 20110316
  Transmission Date: 20120608
  Serious: No
  Sender: FDA-Public Use
  Company Number: US-ABBOTT-11P-163-0712036-00

PATIENT
  Sex: Female

DRUGS (6)
  1. XANAX [Concomitant]
     Indication: ANXIETY
  2. CELEXA [Concomitant]
     Indication: RHEUMATOID ARTHRITIS
     Dosage: AT BEDTIME
  3. FENTANYL [Concomitant]
     Indication: PAIN
     Dosage: PATCH; 1 EVER 3 DAYS
  4. SULFASALAZINE EC [Concomitant]
     Indication: RHEUMATOID ARTHRITIS
  5. OXYCODONE HCL [Concomitant]
     Indication: PAIN
     Dosage: 10MG - 4 TABLETS/DAY
  6. HUMIRA [Suspect]
     Indication: RHEUMATOID ARTHRITIS
     Route: 058
     Dates: start: 20110301

REACTIONS (3)
  - NAUSEA [None]
  - HEADACHE [None]
  - RHEUMATOID ARTHRITIS [None]
